FAERS Safety Report 15537210 (Version 1)
Quarter: 2018Q4

REPORT INFORMATION
  Report Type: Spontaneous
  Country: FR (occurrence: FR)
  Receive Date: 20181022
  Receipt Date: 20181022
  Transmission Date: 20190205
  Serious: Yes (Other)
  Sender: FDA-Public Use
  Company Number: PHHY2018FR130618

PATIENT
  Age: 83 Year
  Sex: Female
  Weight: 58 kg

DRUGS (4)
  1. PREDNISONE. [Suspect]
     Active Substance: PREDNISONE
     Indication: POLYMYALGIA RHEUMATICA
     Dosage: 1 MG, QD
     Route: 065
     Dates: start: 201310
  2. PROLIA [Suspect]
     Active Substance: DENOSUMAB
     Dosage: 1 DF, Q6H (1 UG/LITRE)
     Route: 058
     Dates: start: 201206
  3. CORTISONE [Concomitant]
     Active Substance: CORTISONE\HYDROCORTISONE
     Indication: PRODUCT USED FOR UNKNOWN INDICATION
     Route: 065
  4. PROLIA [Suspect]
     Active Substance: DENOSUMAB
     Indication: OSTEOPOROSIS
     Dosage: 1 DF, Q6M (1 UG/LITRE)
     Route: 058
     Dates: start: 201204

REACTIONS (2)
  - Spinal compression fracture [Recovering/Resolving]
  - Hypercalcaemia [Not Recovered/Not Resolved]

NARRATIVE: CASE EVENT DATE: 201806
